FAERS Safety Report 7239898-0 (Version None)
Quarter: 2011Q1

REPORT INFORMATION
  Report Type: 
  Country: None (occurrence: None)
  Receive Date: 20110123
  Receipt Date: 20110110
  Transmission Date: 20110831
  Serious: Yes (Life-Threatening)
  Sender: FDA-Public Use
  Company Number: DE-MYLANLABS-2010S1022017

PATIENT
  Age: 80 Year
  Sex: Female
  Weight: 75 kg

DRUGS (1)
  1. IBUPROFEN [Suspect]
     Indication: OSTEOARTHRITIS
     Route: 048
     Dates: start: 20080101, end: 20100201

REACTIONS (3)
  - TUBULOINTERSTITIAL NEPHRITIS [None]
  - NEPHROGENIC ANAEMIA [None]
  - RENAL FAILURE [None]
